FAERS Safety Report 4282189-0 (Version None)
Quarter: 2004Q1

REPORT INFORMATION
  Report Type: 
  Country: None (occurrence: None)
  Receive Date: 20040130
  Receipt Date: 20030819
  Transmission Date: 20041129
  Serious: Yes (Other)
  Sender: FDA-Public Use
  Company Number: US-GLAXOSMITHKLINE-A0422485A

PATIENT
  Age: 28 Year
  Sex: Male
  Weight: 77.6 kg

DRUGS (2)
  1. PAXIL [Suspect]
     Indication: ANXIETY
     Route: 048
     Dates: start: 20011101, end: 20011101
  2. MULTIVITAMIN [Concomitant]

REACTIONS (27)
  - BONE DISORDER [None]
  - COLD SWEAT [None]
  - DEPRESSED LEVEL OF CONSCIOUSNESS [None]
  - EPISTAXIS [None]
  - FEELING COLD [None]
  - FRACTURE [None]
  - GUN SHOT WOUND [None]
  - HAEMORRHAGE [None]
  - HYPERTELORISM OF ORBIT [None]
  - LACERATION [None]
  - LACRIMATION INCREASED [None]
  - MOOD SWINGS [None]
  - MUSCLE DISORDER [None]
  - MYDRIASIS [None]
  - NASAL MUCOSAL DISORDER [None]
  - NAUSEA [None]
  - PNEUMOCEPHALUS [None]
  - SKIN LACERATION [None]
  - SKULL FRACTURED BASE [None]
  - SUICIDAL IDEATION [None]
  - SUICIDE ATTEMPT [None]
  - SWELLING FACE [None]
  - TACHYCARDIA [None]
  - TOOTH FRACTURE [None]
  - TOOTH LOSS [None]
  - VISUAL ACUITY REDUCED [None]
  - VOMITING [None]
